FAERS Safety Report 5295886-5 (Version None)
Quarter: 2007Q2

REPORT INFORMATION
  Report Type: 
  Country: None (occurrence: None)
  Receive Date: 20070413
  Receipt Date: 20070402
  Transmission Date: 20071010
  Serious: Yes (Other)
  Sender: FDA-Public Use
  Company Number: PHBS2007JP05976

PATIENT
  Sex: Male

DRUGS (3)
  1. ZOMETA [Suspect]
     Indication: METASTASES TO BONE
     Route: 042
  2. TS 1 [Concomitant]
     Route: 048
  3. GEMZAR [Concomitant]
     Route: 042

REACTIONS (1)
  - OSTEONECROSIS [None]
